FAERS Safety Report 18880360 (Version 1)
Quarter: 2021Q1

REPORT INFORMATION
  Report Type: Spontaneous
  Country: CN (occurrence: CN)
  Receive Date: 20210211
  Receipt Date: 20210211
  Transmission Date: 20210420
  Serious: Yes (Other)
  Sender: FDA-Public Use
  Company Number: CN-BAXTER-2021BAX002649

PATIENT
  Age: 14 Year
  Sex: Female
  Weight: 45 kg

DRUGS (8)
  1. VINCRISTINE SULFATE. [Suspect]
     Active Substance: VINCRISTINE SULFATE
     Indication: EMBRYONAL RHABDOMYOSARCOMA
     Dosage: DAY 8; VDC CHEMOTHERAPY
     Route: 041
     Dates: start: 20201216, end: 20201216
  2. ENDOXAN [Suspect]
     Active Substance: CYCLOPHOSPHAMIDE
     Indication: RHABDOMYOSARCOMA RECURRENT
     Dosage: DAY 1; VDC CHEMOTHERAPY
     Route: 041
     Dates: start: 20201209, end: 20201209
  3. UROMITEXAN [Suspect]
     Active Substance: MESNA
     Indication: PRODUCT USED FOR UNKNOWN INDICATION
     Route: 065
     Dates: start: 20201209
  4. DOXORUBICIN HYDROCHLORIDE. [Suspect]
     Active Substance: DOXORUBICIN HYDROCHLORIDE
     Indication: RHABDOMYOSARCOMA RECURRENT
     Dosage: DAY 1 TO DAY 2; VDC CHEMOTHERAPY
     Route: 041
     Dates: start: 20201209, end: 20201210
  5. VINCRISTINE SULFATE. [Suspect]
     Active Substance: VINCRISTINE SULFATE
     Indication: RHABDOMYOSARCOMA RECURRENT
     Dosage: DAY 1; VDC CHEMOTHERAPY
     Route: 041
     Dates: start: 20201209, end: 20201209
  6. ENDOXAN [Suspect]
     Active Substance: CYCLOPHOSPHAMIDE
     Indication: EMBRYONAL RHABDOMYOSARCOMA
     Dosage: DOSE RE?INTRODUCED; VDC CHEMOTHERAPY
     Route: 041
  7. VINCRISTINE SULFATE. [Suspect]
     Active Substance: VINCRISTINE SULFATE
     Dosage: DAY 15; DOSE RE?INTRODUCED; VDC CHEMOTHERAPY
     Route: 041
     Dates: start: 20201223, end: 20201223
  8. DOXORUBICIN HYDROCHLORIDE. [Suspect]
     Active Substance: DOXORUBICIN HYDROCHLORIDE
     Indication: EMBRYONAL RHABDOMYOSARCOMA
     Dosage: DOSE RE?INTRODUCED; VDC CHEMOTHERAPY
     Route: 041

REACTIONS (1)
  - Myelosuppression [Recovered/Resolved]

NARRATIVE: CASE EVENT DATE: 20201219
